FAERS Safety Report 5697872-X (Version None)
Quarter: 2008Q2

REPORT INFORMATION
  Report Type: 
  Country: None (occurrence: None)
  Receive Date: 20080408
  Receipt Date: 20080408
  Transmission Date: 20081010
  Serious: Yes (Death, Other)
  Sender: FDA-Public Use
  Company Number: JP-BRISTOL-MYERS SQUIBB COMPANY-14131957

PATIENT
  Age: 68 Year
  Sex: Male

DRUGS (7)
  1. PARAPLATIN [Suspect]
     Indication: METASTASES TO LYMPH NODES
     Route: 041
     Dates: start: 20060213, end: 20060615
  2. PARAPLATIN [Suspect]
     Indication: METASTATIC NEOPLASM
     Route: 041
     Dates: start: 20060213, end: 20060615
  3. TAXOTERE [Suspect]
     Indication: METASTASES TO LYMPH NODES
     Route: 041
     Dates: start: 20060213, end: 20060615
  4. TAXOTERE [Suspect]
     Indication: METASTATIC NEOPLASM
     Route: 041
     Dates: start: 20060213, end: 20060615
  5. RADIOTHERAPY [Suspect]
  6. BUP-4 [Concomitant]
     Route: 048
     Dates: start: 20060323, end: 20070810
  7. HARNAL [Concomitant]
     Route: 048
     Dates: start: 20060323, end: 20070810

REACTIONS (2)
  - B-CELL LYMPHOMA [None]
  - METASTATIC NEOPLASM [None]
